FAERS Safety Report 15136216 (Version 1)
Quarter: 2018Q3

REPORT INFORMATION
  Report Type: Spontaneous
  Country: US (occurrence: US)
  Receive Date: 20180618
  Receipt Date: 20180618
  Transmission Date: 20181010
  Serious: Yes (Other)
  Sender: FDA-Public Use
  Company Number: None

PATIENT
  Age: 23 Year
  Sex: Female
  Weight: 76 kg

DRUGS (2)
  1. SKYLA [Suspect]
     Active Substance: LEVONORGESTREL
  2. BIOTIN [Concomitant]
     Active Substance: BIOTIN

REACTIONS (9)
  - Vulvovaginal pain [None]
  - Complication of device insertion [None]
  - Abdominal pain [None]
  - Uterine cervical pain [None]
  - Emotional disorder [None]
  - Urinary tract infection [None]
  - Amenorrhoea [None]
  - Pelvic pain [None]
  - Peripheral swelling [None]

NARRATIVE: CASE EVENT DATE: 20180327
